FAERS Safety Report 19512125 (Version 1)
Quarter: 2021Q3

REPORT INFORMATION
  Report Type: Spontaneous
  Country: PT (occurrence: PT)
  Receive Date: 20210709
  Receipt Date: 20210709
  Transmission Date: 20211014
  Serious: Yes (Hospitalization, Other)
  Sender: FDA-Public Use
  Company Number: PT-RK PHARMA, INC-20210700007

PATIENT

DRUGS (2)
  1. DICLOFENAC POTASSIUM UNSPECIFIED [Suspect]
     Active Substance: DICLOFENAC POTASSIUM
     Dosage: SINGLE DOSE
     Route: 015
  2. PARACETAMOL [Concomitant]
     Active Substance: ACETAMINOPHEN
     Dosage: UNK

REACTIONS (7)
  - Hypoxia [Recovered/Resolved]
  - Atrial septal defect [Recovered/Resolved]
  - Ductus arteriosus premature closure [Recovered/Resolved]
  - Ventricular hypertrophy [Recovered/Resolved]
  - Exposure during pregnancy [Recovered/Resolved]
  - Pulmonary hypertension [Recovered/Resolved]
  - Tricuspid valve incompetence [Recovered/Resolved]
